FAERS Safety Report 5063395-4 (Version None)
Quarter: 2006Q3

REPORT INFORMATION
  Report Type: 
  Country: None (occurrence: None)
  Receive Date: 20060724
  Receipt Date: 20060706
  Transmission Date: 20061208
  Serious: Yes (Hospitalization, Other)
  Sender: FDA-Public Use
  Company Number: US-2006-002403

PATIENT
  Age: 62 Year
  Sex: Female
  Weight: 63.5 kg

DRUGS (21)
  1. BETASERON [Suspect]
     Indication: RELAPSING-REMITTING MULTIPLE SCLEROSIS
     Dosage: 8 MIU, EVERY 2D, SUBCUTANEOUS
     Route: 058
     Dates: start: 20030220, end: 20060622
  2. MIDRIN (ISOMETHEPTENE, DICHLORALPHENAZONE) [Concomitant]
  3. ACETAMINOPHEN [Concomitant]
  4. AMITRIPTYLINE (AMITRIPTYLINE) [Concomitant]
  5. ACETAMINOPHEN [Concomitant]
  6. HYDROCODONE BITARTRATE [Concomitant]
  7. COUMADIN [Concomitant]
  8. LIPITOR [Concomitant]
  9. BACLOFEN [Concomitant]
  10. VITAMIN B-6-12 [Concomitant]
  11. POTASSIUM CHLORIDE CAPSULE [Concomitant]
  12. LASIX [Concomitant]
  13. NEURONTIN [Concomitant]
  14. FOSAMAX [Concomitant]
  15. PREVACID [Concomitant]
  16. PAXIL [Concomitant]
  17. ATIVAN [Concomitant]
  18. K-DUR 10 [Concomitant]
  19. ESTRACE [Concomitant]
  20. ALEVE [Concomitant]
  21. LYRICA [Concomitant]

REACTIONS (14)
  - ABDOMINAL PAIN [None]
  - CONFUSIONAL STATE [None]
  - CONTUSION [None]
  - DEEP VEIN THROMBOSIS [None]
  - DISORIENTATION [None]
  - FALL [None]
  - HAEMATOMA INFECTION [None]
  - HEPATITIS C [None]
  - HIP FRACTURE [None]
  - INCISION SITE INFECTION [None]
  - JOINT DISLOCATION [None]
  - OEDEMA PERIPHERAL [None]
  - SKIN PAPILLOMA [None]
  - URINARY INCONTINENCE [None]
